FAERS Safety Report 9049044 (Version 1)
Quarter: 2013Q1

REPORT INFORMATION
  Report Type: Spontaneous
  Country: US (occurrence: None)
  Receive Date: 20130129
  Receipt Date: 20130129
  Transmission Date: 20140127
  Serious: Yes (Other)
  Sender: FDA-Public Use
  Company Number: None

PATIENT
  Age: 40 Year
  Sex: Female
  Weight: 75.75 kg

DRUGS (1)
  1. LEXAPRO - GENERIC ESCITALOPRAM 20 MG [Suspect]
     Indication: DEPRESSION

REACTIONS (6)
  - Product substitution issue [None]
  - Malaise [None]
  - Disturbance in attention [None]
  - Feeling of despair [None]
  - Agitation [None]
  - Panic attack [None]
